FAERS Safety Report 6964831-6 (Version None)
Quarter: 2010Q3

REPORT INFORMATION
  Report Type: 
  Country: None (occurrence: None)
  Receive Date: 20100903
  Receipt Date: 20100824
  Transmission Date: 20110219
  Serious: Yes (Other)
  Sender: FDA-Public Use
  Company Number: US-JNJFOC-20100808323

PATIENT
  Sex: Male
  Weight: 87.09 kg

DRUGS (10)
  1. REMICADE [Suspect]
     Indication: RHEUMATOID ARTHRITIS
     Route: 042
  2. REMICADE [Suspect]
     Route: 042
  3. REMICADE [Suspect]
     Route: 042
  4. ATENOLOL [Concomitant]
  5. CORTICOSTEROIDS [Concomitant]
     Indication: PREMEDICATION
  6. CORTICOSTEROIDS [Concomitant]
  7. LORATADINE [Concomitant]
     Indication: PREMEDICATION
  8. LORATADINE [Concomitant]
  9. ACETAMINOPHEN [Concomitant]
     Indication: PREMEDICATION
  10. ACETAMINOPHEN [Concomitant]

REACTIONS (3)
  - DYSGEUSIA [None]
  - GLOSSITIS [None]
  - URTICARIA [None]
